FAERS Safety Report 7952121-4 (Version None)
Quarter: 2011Q4

REPORT INFORMATION
  Report Type: 
  Country: None (occurrence: None)
  Receive Date: 20111201
  Receipt Date: 20111122
  Transmission Date: 20120403
  Serious: Yes (Hospitalization)
  Sender: FDA-Public Use
  Company Number: PHEH2011US010107

PATIENT
  Sex: Female

DRUGS (1)
  1. AFINITOR [Suspect]
     Indication: MALIGNANT NEOPLASM OF ISLETS OF LANGERHANS
     Dosage: 5 MG, DAILY
     Route: 048
     Dates: start: 20111031, end: 20111105

REACTIONS (3)
  - RENAL DISORDER [None]
  - DEHYDRATION [None]
  - DIARRHOEA [None]
